FAERS Safety Report 9611206 (Version 4)
Quarter: 2013Q4

REPORT INFORMATION
  Report Type: Report from Study
  Country: US (occurrence: US)
  Receive Date: 20131009
  Receipt Date: 20131127
  Transmission Date: 20140711
  Serious: Yes (Other)
  Sender: FDA-Public Use
  Company Number: US-MERCK-1310USA002150

PATIENT
  Age: 72 Year
  Sex: Male
  Weight: 75.28 kg

DRUGS (3)
  1. SIMVASTATIN [Suspect]
     Indication: ACUTE CORONARY SYNDROME
     Dosage: 40 MG, QD
     Route: 048
     Dates: start: 20071018
  2. ASPIRIN [Concomitant]
     Dosage: 81 MG DAILY
     Route: 048
     Dates: start: 20080202
  3. OMEPRAZOLE [Concomitant]
     Dosage: 20 MG DAILY
     Route: 048
     Dates: start: 20101206

REACTIONS (1)
  - Adenocarcinoma [Recovered/Resolved]
